FAERS Safety Report 12218606 (Version 1)
Quarter: 2016Q1

REPORT INFORMATION
  Report Type: Spontaneous
  Country: AU (occurrence: AU)
  Receive Date: 20160329
  Receipt Date: 20160329
  Transmission Date: 20160526
  Serious: Yes (Other)
  Sender: FDA-Public Use
  Company Number: AU-BAYER-2016-059721

PATIENT

DRUGS (1)
  1. ULTRAVIST [Suspect]
     Active Substance: IOPROMIDE
     Indication: ANGIOGRAM
     Dosage: UNK, ONCE

REACTIONS (2)
  - Respiratory distress [Unknown]
  - Oedema [Unknown]
